FAERS Safety Report 14700238 (Version 2)
Quarter: 2018Q4

REPORT INFORMATION
  Report Type: Report from Study
  Country: BR (occurrence: BR)
  Receive Date: 20180330
  Receipt Date: 20181130
  Transmission Date: 20190204
  Serious: Yes (Other)
  Sender: FDA-Public Use
  Company Number: BR-SA-2018SA089318

PATIENT
  Age: 65 Year
  Sex: Male
  Weight: 86 kg

DRUGS (11)
  1. INSULIN GLARGINE [Suspect]
     Active Substance: INSULIN GLARGINE
     Dosage: 34 IU, UNK
     Route: 058
     Dates: start: 2011
  2. INSULIN GLULISINE [Suspect]
     Active Substance: INSULIN GLULISINE
     Indication: DIABETES MELLITUS MANAGEMENT
     Dosage: UNK UNK, UNK
     Route: 058
     Dates: start: 2011
  3. GANFORT [Concomitant]
     Active Substance: BIMATOPROST\TIMOLOL
     Indication: GLAUCOMA
     Dosage: UNK UNK,UNK
     Route: 065
     Dates: start: 2009
  4. AZORGA [Concomitant]
     Active Substance: BRINZOLAMIDE\TIMOLOL MALEATE
     Indication: CATARACT
  5. EBASTINE [Concomitant]
     Active Substance: EBASTINE
     Indication: ANTICOAGULANT THERAPY
     Dosage: 200 MG,HS
     Route: 048
     Dates: start: 201609
  6. OMEPRAZOLE. [Concomitant]
     Active Substance: OMEPRAZOLE
     Indication: GASTROOESOPHAGEAL REFLUX DISEASE
     Dosage: 1 DF,HS
     Route: 048
     Dates: start: 201607
  7. ZOLPIDEM TARTRATE. [Concomitant]
     Active Substance: ZOLPIDEM TARTRATE
     Indication: DEPRESSION
     Dosage: UNK UNK,HS
     Route: 048
     Dates: start: 201801
  8. AZORGA [Concomitant]
     Active Substance: BRINZOLAMIDE\TIMOLOL MALEATE
     Indication: GLAUCOMA
     Dosage: 1 DF,UNK
     Route: 065
     Dates: start: 201801
  9. GANFORT [Concomitant]
     Active Substance: BIMATOPROST\TIMOLOL
     Indication: OCULAR DISCOMFORT
  10. ESPRAN [Concomitant]
     Active Substance: ESCITALOPRAM OXALATE
     Dosage: 1 DF,QD
     Route: 048
     Dates: start: 201801
  11. GANFORT [Concomitant]
     Active Substance: BIMATOPROST\TIMOLOL
     Indication: CATARACT

REACTIONS (7)
  - Visual impairment [Not Recovered/Not Resolved]
  - Depression [Not Recovered/Not Resolved]
  - Intentional product misuse [Unknown]
  - Dizziness [Not Recovered/Not Resolved]
  - Blood glucose increased [Unknown]
  - Hyperglycaemia [Unknown]
  - Stress [Not Recovered/Not Resolved]

NARRATIVE: CASE EVENT DATE: 20180322
